FAERS Safety Report 5976459-5 (Version None)
Quarter: 2008Q4

REPORT INFORMATION
  Report Type: 
  Country: None (occurrence: None)
  Receive Date: 20081202
  Receipt Date: 20081126
  Transmission Date: 20090506
  Serious: Yes (Hospitalization)
  Sender: FDA-Public Use
  Company Number: US-GENENTECH-272578

PATIENT
  Sex: Male
  Weight: 71.655 kg

DRUGS (9)
  1. BEVACIZUMAB [Suspect]
     Indication: HEAD AND NECK CANCER
     Dosage: 15 MG/KG, 2/MONTH
     Dates: start: 20080911
  2. ERLOTINIB [Suspect]
     Indication: HEAD AND NECK CANCER
     Dosage: 100 MG, QD
     Route: 048
     Dates: start: 20080911
  3. PACLITAXEL [Suspect]
     Indication: HEAD AND NECK CANCER
     Dosage: 50 MG/M2, 1/WEEK
     Dates: start: 20080911
  4. RADIATION THERAPY [Suspect]
     Indication: HEAD AND NECK CANCER
     Dosage: 1.8 GY, UNK
     Dates: start: 20080911
  5. TYLENOL (CAPLET) [Concomitant]
     Indication: DRUG USE FOR UNKNOWN INDICATION
  6. LORTAB [Concomitant]
     Indication: PAIN
  7. PROTONIX [Concomitant]
     Indication: DRUG USE FOR UNKNOWN INDICATION
     Dosage: UNK
  8. CLINDAMYCIN HCL [Concomitant]
     Indication: DRUG USE FOR UNKNOWN INDICATION
     Route: 061
  9. KEFLEX [Concomitant]
     Indication: DRUG USE FOR UNKNOWN INDICATION
     Dosage: UNK
     Route: 048

REACTIONS (1)
  - MUCOSAL INFLAMMATION [None]
